FAERS Safety Report 21259725 (Version 1)
Quarter: 2022Q3

REPORT INFORMATION
  Report Type: Spontaneous
  Country: US (occurrence: US)
  Receive Date: 20220826
  Receipt Date: 20220826
  Transmission Date: 20221026
  Serious: Yes (Other)
  Sender: FDA-Public Use
  Company Number: US-PFIZER INC-202201094405

PATIENT
  Sex: Male

DRUGS (1)
  1. PAXLOVID [Suspect]
     Active Substance: NIRMATRELVIR\RITONAVIR
     Indication: COVID-19 treatment
     Dosage: UNK

REACTIONS (7)
  - Deafness [Unknown]
  - Conversion disorder [Unknown]
  - Vomiting [Unknown]
  - Myalgia [Unknown]
  - Diarrhoea [Unknown]
  - Dysphonia [Unknown]
  - Ageusia [Unknown]
